FAERS Safety Report 8228856-5 (Version None)
Quarter: 2012Q1

REPORT INFORMATION
  Report Type: 
  Country: None (occurrence: None)
  Receive Date: 20120322
  Receipt Date: 20110531
  Transmission Date: 20120608
  Serious: Yes (Life-Threatening)
  Sender: FDA-Public Use
  Company Number: US-MYLANLABS-2011S1011404

PATIENT
  Age: 58 Year
  Sex: Female

DRUGS (1)
  1. TAMOXIFEN CITRATE [Suspect]
     Indication: BREAST CANCER
     Route: 048
     Dates: start: 20061001, end: 20110401

REACTIONS (4)
  - UTERINE CANCER [None]
  - WEIGHT INCREASED [None]
  - INSOMNIA [None]
  - HYPERHIDROSIS [None]
